FAERS Safety Report 11269548 (Version 1)
Quarter: 2015Q3

REPORT INFORMATION
  Report Type: Spontaneous
  Country: US (occurrence: None)
  Receive Date: 20150713
  Receipt Date: 20150713
  Transmission Date: 20151125
  Serious: Yes (Hospitalization)
  Sender: FDA-Public Use
  Company Number: None

PATIENT
  Age: 70 Year
  Sex: Male

DRUGS (2)
  1. ASPIRIN. [Suspect]
     Active Substance: ASPIRIN
     Indication: CEREBRAL ARTERY STENOSIS
     Route: 048
     Dates: start: 20130911
  2. CLOPIDOGREL [Suspect]
     Active Substance: CLOPIDOGREL BISULFATE
     Indication: CEREBRAL ARTERY STENOSIS
     Route: 048
     Dates: start: 20130603

REACTIONS (9)
  - Gastric haemorrhage [None]
  - Neoplasm malignant [None]
  - Dizziness [None]
  - Diverticulum intestinal haemorrhagic [None]
  - Haematochezia [None]
  - Colitis ischaemic [None]
  - Upper gastrointestinal haemorrhage [None]
  - Extra dose administered [None]
  - Balance disorder [None]

NARRATIVE: CASE EVENT DATE: 20150709
